FAERS Safety Report 6163099-0 (Version None)
Quarter: 2009Q2

REPORT INFORMATION
  Report Type: 
  Country: None (occurrence: None)
  Receive Date: 20090422
  Receipt Date: 20090410
  Transmission Date: 20091009
  Serious: Yes (Other)
  Sender: FDA-Public Use
  Company Number: US-JNJFOC-20090201218

PATIENT
  Sex: Female
  Weight: 48 kg

DRUGS (11)
  1. REMICADE [Suspect]
     Indication: CROHN'S DISEASE
     Dosage: THIRD DOSE
     Route: 042
  2. REMICADE [Suspect]
     Indication: JUVENILE ARTHRITIS
     Route: 042
  3. REMICADE [Suspect]
     Indication: COLITIS ULCERATIVE
     Route: 042
  4. PREDNISONE [Concomitant]
  5. PREVACID [Concomitant]
  6. FOLIC ACID [Concomitant]
  7. ALLEGRA [Concomitant]
  8. VITAMIN D [Concomitant]
  9. TYLENOL [Concomitant]
     Indication: PREMEDICATION
  10. BENADRYL [Concomitant]
     Indication: PREMEDICATION
  11. COLAZAL [Concomitant]

REACTIONS (9)
  - ARTHRALGIA [None]
  - CHEST DISCOMFORT [None]
  - DRUG INEFFECTIVE [None]
  - DYSPNOEA [None]
  - DYSTONIA [None]
  - INFUSION RELATED REACTION [None]
  - OEDEMA PERIPHERAL [None]
  - PAIN [None]
  - SWELLING FACE [None]
